FAERS Safety Report 7817452-7 (Version None)
Quarter: 2011Q4

REPORT INFORMATION
  Report Type: 
  Country: None (occurrence: None)
  Receive Date: 20111017
  Receipt Date: 20111014
  Transmission Date: 20120403
  Serious: Yes (Death)
  Sender: FDA-Public Use
  Company Number: AU-ROCHE-1004753

PATIENT
  Sex: Male

DRUGS (2)
  1. OXALIPLATIN [Concomitant]
  2. XELODA [Suspect]
     Indication: COLORECTAL CANCER METASTATIC

REACTIONS (2)
  - WEIGHT DECREASED [None]
  - INTESTINAL ISCHAEMIA [None]
